FAERS Safety Report 19227138 (Version 1)
Quarter: 2021Q2

REPORT INFORMATION
  Report Type: Report from Study
  Country: NL (occurrence: NL)
  Receive Date: 20210507
  Receipt Date: 20210507
  Transmission Date: 20210717
  Serious: Yes (Other)
  Sender: FDA-Public Use
  Company Number: NL-AMGEN-NLDSL2021066488

PATIENT
  Age: 70 Year
  Sex: Female

DRUGS (12)
  1. TOBRAMICINA DEXAMETASONA [Concomitant]
     Dosage: 1/3MG/ML FL 5ML 3D1DR
  2. EXEMESTAAN [Concomitant]
     Active Substance: EXEMESTANE
     Dosage: 25 MILLIGRAM, QD
  3. PREDNISOLONE. [Concomitant]
     Active Substance: PREDNISOLONE
     Dosage: 5 MILLIGRAM
  4. EVEROLIMUS. [Concomitant]
     Active Substance: EVEROLIMUS
     Dosage: 10 MILLIGRAM, QD
  5. XGEVA [Suspect]
     Active Substance: DENOSUMAB
     Indication: PROPHYLAXIS
     Dosage: 120 MILLIGRAM, Q4WK
     Route: 058
     Dates: start: 20190529
  6. CALCIUM CARBONATE;COLECALCIFEROL [Concomitant]
     Active Substance: CALCIUM CARBONATE\CHOLECALCIFEROL
     Dosage: 1,25G/400IE (500MG CA) QD
  7. PANTOPRAZOLE [Concomitant]
     Active Substance: PANTOPRAZOLE
     Dosage: 20 MILLIGRAM, QD
  8. NEPAFENAC [Concomitant]
     Active Substance: NEPAFENAC
     Dosage: 3MG/ML FL 3ML 1D1DR
  9. CALCIUM CARBONATE;COLECALCIFEROL [Concomitant]
     Active Substance: CALCIUM CARBONATE\CHOLECALCIFEROL
     Dosage: 1,25G/440IE (500MG CA) QD
  10. MORPHINE [Concomitant]
     Active Substance: MORPHINE
     Dosage: 10MG (SULFATE) 1UW1T
  11. TAMOXIFEN [Concomitant]
     Active Substance: TAMOXIFEN
     Dosage: 20 MILLIGRAM, QD
  12. BECLOMETASONE;FORMOTEROL [Concomitant]
     Active Substance: BECLOMETHASONE\FORMOTEROL
     Dosage: 100/6UG/DO 120D NEXT 2D2I

REACTIONS (3)
  - Optic nerve disorder [Not Recovered/Not Resolved]
  - Lung neoplasm malignant [Unknown]
  - Cataract operation [Unknown]

NARRATIVE: CASE EVENT DATE: 20210419
